FAERS Safety Report 25927532 (Version 1)
Quarter: 2025Q4

REPORT INFORMATION
  Report Type: Report from Study
  Country: US (occurrence: US)
  Receive Date: 20251015
  Receipt Date: 20251015
  Transmission Date: 20260119
  Serious: Yes (Other)
  Sender: ABBVIE
  Company Number: US-ABBVIE-6502780

PATIENT
  Sex: Female

DRUGS (1)
  1. UBRELVY [Suspect]
     Active Substance: UBROGEPANT
     Indication: Migraine
     Route: 048
     Dates: start: 20230101

REACTIONS (6)
  - Cerebrovascular accident [Unknown]
  - Confusional state [Unknown]
  - Pharyngitis streptococcal [Unknown]
  - Speech disorder [Unknown]
  - Memory impairment [Unknown]
  - Cerebral disorder [Unknown]
